FAERS Safety Report 7927022-8 (Version None)
Quarter: 2011Q4

REPORT INFORMATION
  Report Type: 
  Country: None (occurrence: None)
  Receive Date: 20111118
  Receipt Date: 20111113
  Transmission Date: 20120403
  Serious: Yes (Other)
  Sender: FDA-Public Use
  Company Number: MX-BRISTOL-MYERS SQUIBB COMPANY-16214397

PATIENT
  Age: 36 Year
  Sex: Male

DRUGS (3)
  1. SERTRALINE HYDROCHLORIDE [Concomitant]
  2. GLIMEPIRIDE [Concomitant]
     Dosage: 1 DF:2/1000MG
  3. ONGLYZA [Suspect]
     Indication: DIABETES MELLITUS
     Dosage: INTER DATE: NOV11.
     Route: 048
     Dates: start: 20110903

REACTIONS (6)
  - NAUSEA [None]
  - ANGIOEDEMA [None]
  - URTICARIA [None]
  - BRONCHOSPASM [None]
  - VOMITING [None]
  - RASH GENERALISED [None]
